FAERS Safety Report 21576780 (Version 2)
Quarter: 2022Q4

REPORT INFORMATION
  Report Type: Spontaneous
  Country: US (occurrence: None)
  Receive Date: 20221110
  Receipt Date: 20221121
  Transmission Date: 20230112
  Serious: Yes (Death)
  Sender: FDA-Public Use
  Company Number: US-ROCHE-3215730

PATIENT
  Sex: Male

DRUGS (5)
  1. COTELLIC [Suspect]
     Active Substance: COBIMETINIB
     Indication: Malignant melanoma
     Route: 048
     Dates: start: 20220802
  2. ZELBORAF [Suspect]
     Active Substance: VEMURAFENIB
     Indication: Malignant melanoma
     Route: 048
     Dates: start: 20220728
  3. ALLOPURINOL [Concomitant]
     Active Substance: ALLOPURINOL
  4. LOSARTAN POTASSIUM [Concomitant]
     Active Substance: LOSARTAN POTASSIUM
  5. OXYCODONE [Concomitant]
     Active Substance: OXYCODONE

REACTIONS (1)
  - Death [Fatal]
